FAERS Safety Report 6237226-0 (Version None)
Quarter: 2009Q2

REPORT INFORMATION
  Report Type: 
  Country: None (occurrence: None)
  Receive Date: 20090619
  Receipt Date: 20090609
  Transmission Date: 20091009
  Serious: Yes (Hospitalization)
  Sender: FDA-Public Use
  Company Number: US-ABBOTT-09P-163-0574447-00

PATIENT
  Sex: Female
  Weight: 73.548 kg

DRUGS (11)
  1. TRILIPIX [Suspect]
     Indication: DYSLIPIDAEMIA
     Route: 048
     Dates: start: 20090417, end: 20090512
  2. TRILIPIX [Suspect]
     Route: 048
     Dates: start: 20090515, end: 20090520
  3. HYDROCHLOROTHIAZIDE [Concomitant]
     Indication: OEDEMA
     Route: 048
     Dates: start: 20070101
  4. OMEPRAZOLE [Concomitant]
     Indication: GASTROOESOPHAGEAL REFLUX DISEASE
     Route: 048
     Dates: start: 20020101
  5. FLONASE [Concomitant]
     Indication: HYPERSENSITIVITY
     Route: 045
     Dates: start: 20080101
  6. ZYRTEC [Concomitant]
     Indication: HYPERSENSITIVITY
     Route: 048
     Dates: start: 20080101
  7. ALBUTEROL SULFATE [Concomitant]
     Indication: HYPERSENSITIVITY
     Route: 055
     Dates: start: 20060101
  8. NAPROXEN [Concomitant]
     Indication: ARTHRALGIA
     Dates: start: 20030101
  9. SIMVASTATIN [Concomitant]
     Indication: HYPERCHOLESTEROLAEMIA
     Dates: start: 20060101, end: 20090219
  10. ATORVASTATIN CALCIUM [Concomitant]
     Indication: HYPERLIPIDAEMIA
     Dates: start: 20090220, end: 20090309
  11. ATORVASTATIN CALCIUM [Concomitant]
     Dates: start: 20090310

REACTIONS (1)
  - GASTROOESOPHAGEAL REFLUX DISEASE [None]
